FAERS Safety Report 4734576-1 (Version None)
Quarter: 2005Q3

REPORT INFORMATION
  Report Type: 
  Country: None (occurrence: None)
  Receive Date: 20050729
  Receipt Date: 20050721
  Transmission Date: 20060218
  Serious: Yes (Life-Threatening, Hospitalization, Other)
  Sender: FDA-Public Use
  Company Number: USA-2005-0020649

PATIENT
  Age: 50 Year
  Sex: Male
  Weight: 158.7 kg

DRUGS (3)
  1. OXYCONTIN [Suspect]
     Indication: PAIN
     Dosage: SEE IMAGE
     Dates: start: 20050101, end: 20050223
  2. OXYCONTIN [Suspect]
     Indication: PAIN
     Dosage: SEE IMAGE
     Dates: start: 20050103, end: 20050522
  3. LORTAB [Suspect]
     Dosage: 6 TABLET, DAILY

REACTIONS (12)
  - ARTHRITIS [None]
  - CARDIAC FAILURE [None]
  - CARDIAC TAMPONADE [None]
  - CHEST PAIN [None]
  - COMA [None]
  - DYSPNOEA [None]
  - NECK PAIN [None]
  - OEDEMA PERIPHERAL [None]
  - PAIN IN EXTREMITY [None]
  - PERICARDIAL EFFUSION [None]
  - RESPIRATORY FAILURE [None]
  - SEPSIS [None]
